FAERS Safety Report 8998677 (Version 3)
Quarter: 2013Q2

REPORT INFORMATION
  Report Type: Spontaneous
  Country: US (occurrence: US)
  Receive Date: 20130103
  Receipt Date: 20130527
  Transmission Date: 20140414
  Serious: Yes (Death, Life-Threatening, Hospitalization, Other)
  Sender: FDA-Public Use
  Company Number: US-009507513-1212USA011296

PATIENT
  Age: 55 Year
  Sex: Male

DRUGS (8)
  1. ISENTRESS [Suspect]
     Indication: ANTIRETROVIRAL THERAPY
     Dosage: UNK
     Route: 048
     Dates: end: 201205
  2. ISENTRESS [Suspect]
     Dosage: 400 MG, Q12H
     Route: 048
     Dates: start: 20121016, end: 20121114
  3. INTELENCE [Suspect]
     Indication: ANTIRETROVIRAL THERAPY
     Dosage: UNK
     Dates: end: 201205
  4. EPZICOM [Concomitant]
     Indication: HIV INFECTION
     Dosage: 1 DF, QD
     Route: 048
     Dates: start: 20121016, end: 20121114
  5. KALETRA [Concomitant]
     Indication: HIV INFECTION
     Dosage: 2 DF, BID
     Route: 048
     Dates: start: 20121016, end: 20121114
  6. AZITHROMYCIN [Concomitant]
     Indication: PROPHYLAXIS
     Dosage: 1200, QW
     Route: 048
     Dates: start: 2010, end: 20121114
  7. GEMFIBROZIL [Concomitant]
     Indication: HYPERLIPIDAEMIA
     Dosage: 600, BID
     Route: 048
     Dates: start: 2010, end: 20121114
  8. ACYCLOVIR [Concomitant]
     Dosage: 400, BID
     Route: 048
     Dates: start: 2008

REACTIONS (6)
  - Septic shock [Fatal]
  - Cardiac failure congestive [Not Recovered/Not Resolved]
  - Pneumonia [Not Recovered/Not Resolved]
  - Myocardial infarction [Not Recovered/Not Resolved]
  - Respiratory failure [Not Recovered/Not Resolved]
  - Drug hypersensitivity [Unknown]
